FAERS Safety Report 12845035 (Version 1)
Quarter: 2016Q4

REPORT INFORMATION
  Report Type: Spontaneous
  Country: US (occurrence: US)
  Receive Date: 20161013
  Receipt Date: 20161013
  Transmission Date: 20170207
  Serious: Yes (Other)
  Sender: FDA-Public Use
  Company Number: US-REGENERON PHARMACEUTICALS, INC.-2016-22394

PATIENT

DRUGS (18)
  1. EYLEA [Suspect]
     Active Substance: AFLIBERCEPT
     Indication: PROPHYLAXIS
     Dosage: LEFT EYE (OS)
     Route: 031
     Dates: start: 20140401, end: 20140401
  2. EYLEA [Suspect]
     Active Substance: AFLIBERCEPT
     Dosage: OS
     Route: 031
     Dates: start: 20150519, end: 20150519
  3. VITAMIN B12 [Concomitant]
     Active Substance: CYANOCOBALAMIN
     Indication: PRODUCT USED FOR UNKNOWN INDICATION
     Dosage: UNK
  4. EYLEA [Suspect]
     Active Substance: AFLIBERCEPT
     Dosage: OS
     Route: 031
     Dates: start: 20151103, end: 20151103
  5. EYLEA [Suspect]
     Active Substance: AFLIBERCEPT
     Dosage: OS
     Route: 031
     Dates: start: 20140429, end: 20140429
  6. EYLEA [Suspect]
     Active Substance: AFLIBERCEPT
     Dosage: OS
     Route: 031
     Dates: start: 20150815, end: 20150815
  7. EYLEA [Suspect]
     Active Substance: AFLIBERCEPT
     Dosage: OS
     Route: 031
     Dates: start: 20160712, end: 20160712
  8. PRESERVISION [Concomitant]
     Active Substance: MINERALS\VITAMINS
     Indication: PRODUCT USED FOR UNKNOWN INDICATION
     Dosage: UNK
  9. TRUSOPT [Concomitant]
     Active Substance: DORZOLAMIDE HYDROCHLORIDE
     Indication: PRODUCT USED FOR UNKNOWN INDICATION
     Dosage: UNK
     Route: 047
  10. ALPHAGAN P [Concomitant]
     Active Substance: BRIMONIDINE TARTRATE
     Indication: PRODUCT USED FOR UNKNOWN INDICATION
     Dosage: UNK
     Route: 047
  11. EYLEA [Suspect]
     Active Substance: AFLIBERCEPT
     Dosage: OS
     Route: 031
     Dates: start: 20140527, end: 20140527
  12. EYLEA [Suspect]
     Active Substance: AFLIBERCEPT
     Dosage: OS
     Route: 031
     Dates: start: 20140727, end: 20140727
  13. EYLEA [Suspect]
     Active Substance: AFLIBERCEPT
     Dosage: , APPROXIMATELY 12 WEEKS FROM THE LAST DOSEOS
     Route: 031
     Dates: start: 201412, end: 201412
  14. EYLEA [Suspect]
     Active Substance: AFLIBERCEPT
     Dosage: OS
     Route: 031
     Dates: start: 201502, end: 201502
  15. EYLEA [Suspect]
     Active Substance: AFLIBERCEPT
     Dosage: OS
     Route: 031
     Dates: start: 2016, end: 2016
  16. EYLEA [Suspect]
     Active Substance: AFLIBERCEPT
     Dosage: OS, APPROXIMATELY 10 WEEKS FROM THE LAST DOSE
     Route: 031
     Dates: start: 201409, end: 201409
  17. ATORVASTATIN [Concomitant]
     Active Substance: ATORVASTATIN
     Indication: PRODUCT USED FOR UNKNOWN INDICATION
     Dosage: 10 MG MILLIGRAM(S), QOD
  18. VITAMIN D                          /00107901/ [Concomitant]
     Active Substance: ERGOCALCIFEROL
     Indication: PRODUCT USED FOR UNKNOWN INDICATION
     Dosage: 1000 IU INTERNATIONAL UNIT(S), UNK

REACTIONS (7)
  - Off label use [Unknown]
  - Vision blurred [Unknown]
  - Metamorphopsia [Recovered/Resolved]
  - Eye pain [Unknown]
  - Procedural pain [Unknown]
  - Drug ineffective [Unknown]
  - Visual acuity reduced [Not Recovered/Not Resolved]

NARRATIVE: CASE EVENT DATE: 20140401
